FAERS Safety Report 8702219 (Version 5)
Quarter: 2012Q4

REPORT INFORMATION
  Report Type: 
  Country: JP (occurrence: JP)
  Receive Date: 20120803
  Receipt Date: 20121101
  Transmission Date: 20130627
  Serious: Yes (Other)
  Sender: FDA-Public Use
  Company Number: JP-PFIZER INC-2012183020

PATIENT
  Age: 75 Year
  Sex: Male
  Weight: 60 kg

DRUGS (1)
  1. DETRUSITOL [Suspect]
     Indication: OVERACTIVE BLADDER
     Dosage: 2 mg, 2x/day
     Route: 048
     Dates: start: 200703, end: 20070611

REACTIONS (2)
  - Interstitial lung disease [Recovered/Resolved]
  - Interstitial lung disease [Recovered/Resolved]
